FAERS Safety Report 18945435 (Version 1)
Quarter: 2021Q1

REPORT INFORMATION
  Report Type: Spontaneous
  Country: US (occurrence: US)
  Receive Date: 20210226
  Receipt Date: 20210226
  Transmission Date: 20210420
  Serious: No
  Sender: FDA-Public Use
  Company Number: US-BAYER-2021-082636

PATIENT

DRUGS (2)
  1. NEXAVAR [Suspect]
     Active Substance: SORAFENIB
     Indication: DESMOID TUMOUR
     Dosage: 200 MG DAILY
     Dates: start: 201903
  2. NEXAVAR [Suspect]
     Active Substance: SORAFENIB
     Indication: DESMOID TUMOUR
     Dosage: 400 MG DAILY
     Dates: start: 2019

REACTIONS (4)
  - Product dose omission issue [None]
  - Product use in unapproved indication [None]
  - Rash [Recovering/Resolving]
  - Off label use [None]

NARRATIVE: CASE EVENT DATE: 2019
